FAERS Safety Report 8905615 (Version 1)
Quarter: 2012Q4

REPORT INFORMATION
  Report Type: 
  Country: IT (occurrence: IT)
  Receive Date: 20121113
  Receipt Date: 20121113
  Transmission Date: 20130627
  Serious: Yes (Hospitalization)
  Sender: FDA-Public Use
  Company Number: IT-WATSON-2012-19272

PATIENT
  Age: 2 Year
  Sex: Male
  Weight: 15 kg

DRUGS (1)
  1. SALBUTAMOL (UNKNOWN) [Suspect]
     Indication: WHEEZING
     Dosage: 1.5 mg, tid (0.1 mg/kg/dose
     Route: 048

REACTIONS (1)
  - Urinary retention [Recovered/Resolved]
